FAERS Safety Report 23896525 (Version 1)
Quarter: 2024Q2

REPORT INFORMATION
  Report Type: Spontaneous
  Country: CZ (occurrence: CZ)
  Receive Date: 20240524
  Receipt Date: 20240524
  Transmission Date: 20240716
  Serious: Yes (Death, Other)
  Sender: FDA-Public Use
  Company Number: CZ-INCYTE CORPORATION-2024IN005398

PATIENT

DRUGS (3)
  1. TAFASITAMAB [Suspect]
     Active Substance: TAFASITAMAB
     Indication: Diffuse large B-cell lymphoma
     Dosage: UNK
     Route: 065
     Dates: start: 20230724, end: 20230823
  2. LENALIDOMIDE [Concomitant]
     Active Substance: LENALIDOMIDE
     Indication: Diffuse large B-cell lymphoma
     Dosage: UNK
     Route: 065
     Dates: start: 20230724, end: 20230823
  3. POLA BR [Concomitant]
     Indication: Diffuse large B-cell lymphoma
     Dosage: UNK
     Route: 065
     Dates: start: 20230823

REACTIONS (3)
  - Diffuse large B-cell lymphoma [Fatal]
  - Disease progression [Fatal]
  - COVID-19 [Unknown]

NARRATIVE: CASE EVENT DATE: 20231001
